FAERS Safety Report 10329950 (Version 2)
Quarter: 2014Q3

REPORT INFORMATION
  Report Type: Spontaneous
  Country: BR (occurrence: BR)
  Receive Date: 20140721
  Receipt Date: 20140729
  Transmission Date: 20150326
  Serious: Yes (Hospitalization)
  Sender: FDA-Public Use
  Company Number: BR-GLAXOSMITHKLINE-A1081737A

PATIENT
  Age: 30 Year
  Sex: Female
  Weight: 60 kg

DRUGS (6)
  1. BUDESONIDE + FORMOTEROL FUMARATE DIHYDRATE [Concomitant]
     Active Substance: BUDESONIDE\FORMOTEROL FUMARATE DIHYDRATE
  2. PRELONE [Suspect]
     Active Substance: PREDNISOLONE
     Indication: BRONCHOSPASM
  3. ATROVENT [Concomitant]
     Active Substance: IPRATROPIUM BROMIDE
  4. SERETIDE [Suspect]
     Active Substance: FLUTICASONE FUROATE\SALMETEROL XINAFOATE
     Indication: ASTHMA
     Dosage: 2PUFF VARIABLE DOSE
     Dates: start: 20140228
  5. AEROLIN [Suspect]
     Active Substance: ALBUTEROL
     Indication: ASTHMATIC CRISIS
     Dosage: 2PUFF AS REQUIRED
     Dates: start: 2011
  6. BEROTEC [Concomitant]
     Active Substance: FENOTEROL HYDROBROMIDE

REACTIONS (11)
  - Throat irritation [Not Recovered/Not Resolved]
  - Heart rate irregular [Not Recovered/Not Resolved]
  - Product quality issue [Unknown]
  - Bronchospasm [Not Recovered/Not Resolved]
  - Tongue pruritus [Not Recovered/Not Resolved]
  - Cough [Not Recovered/Not Resolved]
  - Dyspnoea [Not Recovered/Not Resolved]
  - Wheezing [Unknown]
  - Asthmatic crisis [Unknown]
  - Drug administration error [Unknown]
  - Chest discomfort [Unknown]

NARRATIVE: CASE EVENT DATE: 2011
